FAERS Safety Report 9966964 (Version 2)
Quarter: 2014Q2

REPORT INFORMATION
  Report Type: Spontaneous
  Country: US (occurrence: US)
  Receive Date: 20140305
  Receipt Date: 20140527
  Transmission Date: 20141212
  Serious: No
  Sender: FDA-Public Use
  Company Number: US-009507513-1311USA009174

PATIENT
  Sex: Female
  Weight: 63.49 kg

DRUGS (3)
  1. OXYTROL FOR WOMEN [Suspect]
     Indication: PRODUCT USED FOR UNKNOWN INDICATION
     Dosage: UNK, UNKNOWN
     Route: 062
     Dates: start: 20131110, end: 20131111
  2. OXYTROL FOR WOMEN [Suspect]
     Indication: HYPERTONIC BLADDER
  3. VESICARE [Concomitant]
     Indication: HYPERTONIC BLADDER
     Dosage: UNK, UNKNOWN

REACTIONS (2)
  - Urinary retention [Unknown]
  - Pain [Unknown]
